FAERS Safety Report 9814004 (Version 1)
Quarter: 2014Q1

REPORT INFORMATION
  Report Type: Spontaneous
  Country: FR (occurrence: FR)
  Receive Date: 20140113
  Receipt Date: 20140113
  Transmission Date: 20141002
  Serious: Yes (Hospitalization)
  Sender: FDA-Public Use
  Company Number: PHHY2014FR002278

PATIENT
  Age: 25 Year
  Sex: Male

DRUGS (1)
  1. TERBINAFINE [Suspect]

REACTIONS (5)
  - Renal failure [Recovered/Resolved]
  - Hepatic failure [Recovered/Resolved]
  - Acute generalised exanthematous pustulosis [Recovered/Resolved]
  - Nikolsky^s sign [Recovered/Resolved]
  - Blister [Recovered/Resolved]
